FAERS Safety Report 4430714-9 (Version None)
Quarter: 2004Q3

REPORT INFORMATION
  Report Type: 
  Country: None (occurrence: None)
  Receive Date: 20040818
  Receipt Date: 20040809
  Transmission Date: 20050211
  Serious: Yes (Other)
  Sender: FDA-Public Use
  Company Number: UY-2004-030064

PATIENT
  Age: 31 Year
  Sex: Female
  Weight: 82 kg

DRUGS (2)
  1. YASMIN [Suspect]
     Indication: ORAL CONTRACEPTION
     Dosage: 1 TAB(S), 1X/DAY, ORAL
     Route: 048
     Dates: start: 20040417, end: 20040602
  2. AZITHROMYCIN [Concomitant]

REACTIONS (1)
  - HEPATITIS [None]
